FAERS Safety Report 6458685-4 (Version None)
Quarter: 2009Q4

REPORT INFORMATION
  Report Type: 
  Country: None (occurrence: None)
  Receive Date: 20091120
  Receipt Date: 20091105
  Transmission Date: 20100525
  Serious: Yes (Hospitalization)
  Sender: FDA-Public Use
  Company Number: DSJ-2009-10908

PATIENT
  Age: 45 Year
  Sex: Female

DRUGS (5)
  1. OLMESARTAN MEDOXOMIL [Suspect]
     Indication: HYPERTENSION
     Dosage: 20 MG, PER ORAL
     Route: 048
     Dates: start: 20090723, end: 20090727
  2. TRICHLORMETHIAZIDE [Concomitant]
  3. PRAVATIN (PRAVASTATIN SODIUM) [Concomitant]
  4. EPADEL S (ETHYL ICOSAPENTATE) [Concomitant]
  5. MUCOSTA (REBAMIPIDE) [Concomitant]

REACTIONS (1)
  - HEPATITIS [None]
